FAERS Safety Report 6252821-0 (Version None)
Quarter: 2009Q2

REPORT INFORMATION
  Report Type: 
  Country: None (occurrence: None)
  Receive Date: 20090629
  Receipt Date: 20090616
  Transmission Date: 20091009
  Serious: Yes (Other)
  Sender: FDA-Public Use
  Company Number: 2009AP002298

PATIENT
  Age: 59 Year
  Sex: Female

DRUGS (4)
  1. CYCLOSPORINE [Suspect]
     Indication: IMMUNOSUPPRESSION
  2. SIROLIMUS [Suspect]
     Indication: IMMUNOSUPPRESSION
  3. MYCOPHENOLATE MOFETIL [Suspect]
     Indication: IMMUNOSUPPRESSION
  4. AZATHIOPRINE [Concomitant]

REACTIONS (7)
  - CHRONIC ALLOGRAFT NEPHROPATHY [None]
  - DISEASE RECURRENCE [None]
  - GLOMERULONEPHRITIS CHRONIC [None]
  - KIDNEY TRANSPLANT REJECTION [None]
  - PROTEINURIA [None]
  - RENAL FAILURE ACUTE [None]
  - URINE PROTEIN/CREATININE RATIO INCREASED [None]
